FAERS Safety Report 5907722-1 (Version None)
Quarter: 2008Q4

REPORT INFORMATION
  Report Type: 
  Country: None (occurrence: None)
  Receive Date: 20081003
  Receipt Date: 20080930
  Transmission Date: 20090506
  Serious: Yes (Hospitalization)
  Sender: FDA-Public Use
  Company Number: US-ABBOTT-08P-163-0478919-00

PATIENT
  Age: 58 Year
  Sex: Male

DRUGS (2)
  1. HUMIRA [Suspect]
     Indication: PSORIASIS
     Route: 058
     Dates: start: 20080826
  2. ETANERCEPT [Suspect]
     Indication: PSORIASIS
     Dates: start: 20080201, end: 20080801

REACTIONS (2)
  - HYPERGLYCAEMIA [None]
  - PERIORBITAL CELLULITIS [None]
